FAERS Safety Report 7927057-5 (Version None)
Quarter: 2011Q4

REPORT INFORMATION
  Report Type: 
  Country: None (occurrence: None)
  Receive Date: 20111118
  Receipt Date: 20111109
  Transmission Date: 20120403
  Serious: Yes (Other)
  Sender: FDA-Public Use
  Company Number: GB-ASTELLAS-2011EU001753

PATIENT
  Sex: Male
  Weight: 23 kg

DRUGS (8)
  1. ELOCON [Concomitant]
     Indication: DERMATITIS ATOPIC
     Dosage: UNK
     Route: 061
     Dates: start: 20100106
  2. DUODERM EXTRA THIN [Concomitant]
     Indication: DERMATITIS ATOPIC
     Dosage: UNK
     Route: 062
     Dates: start: 20070731
  3. EPADERM [Concomitant]
     Indication: DERMATITIS ATOPIC
     Dosage: UNK
     Route: 061
     Dates: start: 20050704
  4. FUCIDIN-H [Concomitant]
     Indication: DERMATITIS ATOPIC
     Dosage: UNK
     Route: 061
     Dates: start: 20110119
  5. CLOBETASOL PROPIONATE [Concomitant]
     Indication: DERMATITIS ATOPIC
     Dosage: UNK
     Route: 061
     Dates: start: 20100119
  6. TACROLIMUS [Suspect]
     Indication: DERMATITIS ATOPIC
     Dosage: 0.03 %, UNKNOWN/D
     Route: 061
     Dates: start: 20060627
  7. OILATUM PLUS [Concomitant]
     Indication: DERMATITIS ATOPIC
     Dosage: UNK
     Route: 061
     Dates: start: 20050318
  8. DERMOL SOL [Concomitant]
     Indication: DERMATITIS ATOPIC
     Dosage: UNK
     Route: 061
     Dates: start: 20050318

REACTIONS (1)
  - LYMPHADENOPATHY [None]
